FAERS Safety Report 13160117 (Version 1)
Quarter: 2017Q1

REPORT INFORMATION
  Report Type: Spontaneous
  Country: DE (occurrence: DE)
  Receive Date: 20170127
  Receipt Date: 20170127
  Transmission Date: 20170428
  Serious: Yes (Other)
  Sender: FDA-Public Use
  Company Number: GXKR2017DE000833

PATIENT

DRUGS (10)
  1. LEVODOPA [Concomitant]
     Active Substance: LEVODOPA
     Indication: RESTLESS LEGS SYNDROME
     Dosage: 25 [MG/D ]
     Route: 064
  2. RENNIE [Concomitant]
     Active Substance: MAGNESIUM CARBONATE
     Indication: DYSPEPSIA
     Route: 064
  3. RIOPAN [Concomitant]
     Active Substance: MAGALDRATE
     Indication: DYSPEPSIA
     Dosage: 4 OR 5 TIMES ONLY
     Route: 064
  4. SERTRALINE [Suspect]
     Active Substance: SERTRALINE HYDROCHLORIDE
     Indication: DEPRESSION
     Dosage: 100 [MG/D ]
     Route: 064
     Dates: start: 20151128, end: 20160815
  5. ATOSIL [Concomitant]
     Active Substance: PROMETHAZINE HYDROCHLORIDE
     Indication: SLEEP DISORDER
     Route: 064
     Dates: start: 20160111, end: 20160111
  6. AGYRAX [Concomitant]
     Active Substance: MECLIZINE HYDROCHLORIDE
     Indication: NAUSEA
     Dosage: 25 [MG/D ]
     Route: 064
  7. FERRLECIT [Concomitant]
     Active Substance: SODIUM FERRIC GLUCONATE COMPLEX
     Indication: IRON DEFICIENCY
     Dosage: 18 INJECTIONS IN TOTAL
     Route: 064
  8. FOLIC ACID. [Concomitant]
     Active Substance: FOLIC ACID
     Indication: PROPHYLAXIS OF NEURAL TUBE DEFECT
     Dosage: 0.4 [MG/D ]
     Route: 064
  9. NAUSEMA [Concomitant]
     Indication: NAUSEA
     Route: 064
  10. OMEPRAZOLE. [Concomitant]
     Active Substance: OMEPRAZOLE
     Indication: DYSPEPSIA
     Dosage: ONLY ONCE DURING THAT TIME
     Route: 064

REACTIONS (5)
  - Hyperbilirubinaemia neonatal [Recovered/Resolved]
  - Haemolysis [Unknown]
  - Respiratory disorder neonatal [Recovered/Resolved]
  - Anaemia [Recovering/Resolving]
  - Atrial septal defect [Unknown]

NARRATIVE: CASE EVENT DATE: 20160815
